FAERS Safety Report 10574891 (Version 3)
Quarter: 2015Q1

REPORT INFORMATION
  Report Type: Report from Study
  Country: JP (occurrence: JP)
  Receive Date: 20141110
  Receipt Date: 20150302
  Transmission Date: 20150720
  Serious: Yes (Other)
  Sender: FDA-Public Use
  Company Number: JP-009507513-1411JPN000897

PATIENT
  Age: 72 Year
  Sex: Male
  Weight: 55 kg

DRUGS (10)
  1. PARIET [Concomitant]
     Active Substance: RABEPRAZOLE SODIUM
     Indication: GASTROOESOPHAGEAL REFLUX DISEASE
     Dosage: 20 MG, 1 IN 1 DAY
     Route: 048
  2. PEGINTRON [Suspect]
     Active Substance: PEGINTERFERON ALFA-2B
     Indication: CHRONIC HEPATITIS C
     Dosage: 1.5 MICROGRAM PER KILOGRAM, 1 IN 1 WEEK
     Route: 058
     Dates: start: 20140401, end: 20140909
  3. KETAS [Concomitant]
     Active Substance: IBUDILAST
     Indication: CEREBRAL INFARCTION
     Dosage: 30 MG, 1 IN 1 DAY
     Route: 048
  4. MUCOSTA [Concomitant]
     Active Substance: REBAMIPIDE
     Dosage: 300 MG, 1 IN 1 DAY
     Route: 048
  5. BAYASPIRIN [Concomitant]
     Active Substance: ASPIRIN
     Indication: CEREBRAL INFARCTION
     Dosage: 100 MG, 1 IN 1 DAY
     Route: 048
  6. FOIPAN [Concomitant]
     Active Substance: CAMOSTAT MESYLATE
     Indication: PANCREATITIS CHRONIC
     Dosage: 600 MG, 1 IN 1 DAY
     Route: 048
  7. SIMEPREVIR [Suspect]
     Active Substance: SIMEPREVIR
     Indication: CHRONIC HEPATITIS C
     Dosage: 100 MG, 1 IN 1 DAY
     Route: 048
     Dates: start: 20140401, end: 20140623
  8. RIBAVIRIN. [Suspect]
     Active Substance: RIBAVIRIN
     Indication: CHRONIC HEPATITIS C
     Dosage: 600 MG, 1 IN 1 DAY
     Route: 048
     Dates: start: 20140401, end: 20140915
  9. LIVACT [Concomitant]
     Active Substance: AMINO ACIDS
     Indication: HYPOALBUMINAEMIA
     Dosage: 3 DOSE (S), 1 IN 1 DDY
     Route: 048
  10. JUVELA N [Concomitant]
     Active Substance: TOCOPHERYL NICOTINATE, D-.ALPHA.
     Indication: CEREBRAL INFARCTION
     Dosage: 600 MG, 1 IN 1 DAY
     Route: 048

REACTIONS (7)
  - Pyrexia [Recovering/Resolving]
  - Anaemia [Recovering/Resolving]
  - Hypotension [Recovered/Resolved]
  - Pruritus [Recovered/Resolved]
  - Dizziness [Recovered/Resolved]
  - Blood bilirubin increased [Recovered/Resolved]
  - White blood cell count decreased [Recovering/Resolving]

NARRATIVE: CASE EVENT DATE: 20140401
